FAERS Safety Report 20679993 (Version 1)
Quarter: 2022Q2

REPORT INFORMATION
  Report Type: Spontaneous
  Country: US (occurrence: US)
  Receive Date: 20220406
  Receipt Date: 20220406
  Transmission Date: 20220721
  Serious: Yes (Other)
  Sender: FDA-Public Use
  Company Number: US-BRISTOL-MYERS SQUIBB COMPANY-2022-012260

PATIENT
  Age: 42 Year
  Sex: Female
  Weight: 63.3 kg

DRUGS (5)
  1. REVLIMID [Suspect]
     Active Substance: LENALIDOMIDE
     Indication: Product used for unknown indication
     Dosage: 21 DAYS ON,7 DAYS OFF
     Route: 048
     Dates: start: 20150612, end: 20151030
  2. REVLIMID [Suspect]
     Active Substance: LENALIDOMIDE
     Dosage: D 5,6,7,8
     Route: 048
     Dates: start: 20151120, end: 20160105
  3. REVLIMID [Suspect]
     Active Substance: LENALIDOMIDE
     Dosage: 21 DAYS ON,7 DAYS OFF
     Route: 048
     Dates: start: 20160316, end: 20160426
  4. REVLIMID [Suspect]
     Active Substance: LENALIDOMIDE
     Dosage: 28 DAYS CONTINUOUS
     Route: 048
     Dates: start: 20200227, end: 20201001
  5. DEXAMETHASONE [Concomitant]
     Active Substance: DEXAMETHASONE
     Indication: Product used for unknown indication
     Dosage: Q 2 WK
     Route: 048
     Dates: start: 20200507, end: 20201001

REACTIONS (1)
  - Malignant neoplasm progression [Unknown]
